FAERS Safety Report 25883422 (Version 1)
Quarter: 2025Q4

REPORT INFORMATION
  Report Type: Spontaneous
  Country: EU (occurrence: EU)
  Receive Date: 20251006
  Receipt Date: 20251006
  Transmission Date: 20260117
  Serious: Yes (Death, Hospitalization, Other)
  Sender: CHEPLAPHARM
  Company Number: None

PATIENT
  Sex: Male
  Weight: 79 kg

DRUGS (50)
  1. QUETIAPINE [Interacting]
     Active Substance: QUETIAPINE
     Indication: Product used for unknown indication
     Route: 048
     Dates: start: 20160830, end: 2016
  2. QUETIAPINE [Interacting]
     Active Substance: QUETIAPINE
     Indication: Product used for unknown indication
  3. QUETIAPINE [Interacting]
     Active Substance: QUETIAPINE
     Indication: Product used for unknown indication
  4. BROMAZEPAM [Interacting]
     Active Substance: BROMAZEPAM
     Dosage: 3 TIMES DAILY?DAILY DOSE: 18 MILLIGRAM
  5. CLONAZEPAM [Interacting]
     Active Substance: CLONAZEPAM
     Indication: Product used for unknown indication
  6. IBUPROFEN [Interacting]
     Active Substance: IBUPROFEN
     Indication: Back pain
     Dosage: THERAPY START DATE: //2016?THERAPY END DATE: //2016. THE DOCTOR PRESCRIBED HIM OVER A PERIOD BET...
     Route: 048
     Dates: start: 2016, end: 2016
  7. CLOTIAZEPAM [Interacting]
     Active Substance: CLOTIAZEPAM
     Indication: Product used for unknown indication
     Route: 048
     Dates: start: 20160830, end: 2016
  8. KETAMINE [Interacting]
     Active Substance: KETAMINE
     Indication: Back pain
     Dosage: THERAPY START DATE: //2016?THERAPY END DATE: //2016. THE DOCTOR PRESCRIBED HIM OVER A PERIOD BET...
     Dates: start: 2016, end: 2016
  9. TRAMADOL HYDROCHLORIDE [Interacting]
     Active Substance: TRAMADOL HYDROCHLORIDE
     Indication: Back pain
     Dosage: THERAPY START DATE: //2016?THERAPY END DATE: //2016. THE DOCTOR PRESCRIBED HIM OVER A PERIOD BET...
     Dates: start: 2016, end: 2016
  10. VALIUM [Interacting]
     Active Substance: DIAZEPAM
     Indication: Product used for unknown indication
     Route: 048
     Dates: start: 20160902, end: 20160905
  11. VALIUM [Interacting]
     Active Substance: DIAZEPAM
     Indication: Product used for unknown indication
     Route: 048
     Dates: start: 20160905, end: 2016
  12. PRAZEPAM [Interacting]
     Active Substance: PRAZEPAM
     Indication: Product used for unknown indication
     Route: 048
     Dates: start: 20160902, end: 2016
  13. THIOCOLCHICOSIDE [Interacting]
     Active Substance: THIOCOLCHICOSIDE
     Indication: Product used for unknown indication
     Route: 048
     Dates: start: 2016, end: 2016
  14. PAROXETINE MESYLATE [Interacting]
     Active Substance: PAROXETINE MESYLATE
     Indication: Product used for unknown indication
     Dosage: PAROXETINE 20 MG/THERAPY START DATE: //2016?THERAPY END DATE: //2016.
     Dates: start: 2016, end: 2016
  15. PAROXETINE MESYLATE [Interacting]
     Active Substance: PAROXETINE MESYLATE
     Indication: Back pain
     Dosage: PAROXETINE 20 MG/THERAPY START DATE: //2016?THERAPY END DATE: //2016.
     Dates: start: 2016, end: 2016
  16. PAROXETINE MESYLATE [Interacting]
     Active Substance: PAROXETINE MESYLATE
     Indication: Product used for unknown indication
     Route: 048
     Dates: start: 20160817, end: 20160908
  17. PAROXETINE MESYLATE [Interacting]
     Active Substance: PAROXETINE MESYLATE
     Indication: Back pain
     Route: 048
     Dates: start: 20160817, end: 20160908
  18. CODEINE PHOSPHATE\IBUPROFEN [Interacting]
     Active Substance: CODEINE PHOSPHATE\IBUPROFEN
     Indication: Back pain
     Dosage: 1 DOSAGE FORM 3/DAY. THERAPY START DATE: //2016?THERAPY END DATE: //2016.
     Route: 048
     Dates: start: 20160902, end: 2016
  19. ETIFOXINE [Interacting]
     Active Substance: ETIFOXINE
     Indication: Product used for unknown indication
     Route: 048
     Dates: start: 20160810, end: 20160908
  20. SKENAN [Interacting]
     Active Substance: MORPHINE SULFATE
     Dosage: THE DOCTOR PRESCRIBED HIM OVER A PERIOD BETWEEN 28-JUL-2016 AND 05-SEP-2016
  21. SKENAN [Interacting]
     Active Substance: MORPHINE SULFATE
     Indication: Back pain
     Dosage: THERAPY START DATE: //2016?THERAPY END DATE: //2016. ?THE DOCTOR PRESCRIBED HIM OVER A PERIOD BE...
     Dates: start: 2016, end: 2016
  22. SKENAN [Interacting]
     Active Substance: MORPHINE SULFATE
     Indication: Back pain
     Dates: start: 201608, end: 20160908
  23. SKENAN [Interacting]
     Active Substance: MORPHINE SULFATE
     Indication: Back pain
     Route: 048
     Dates: start: 20160902, end: 20160905
  24. OXYCONTIN [Interacting]
     Active Substance: OXYCODONE HYDROCHLORIDE
     Indication: Product used for unknown indication
  25. CLOBAZAM [Interacting]
     Active Substance: CLOBAZAM
     Indication: Product used for unknown indication
     Route: 048
     Dates: start: 20160824, end: 20160908
  26. ARTANE [Interacting]
     Active Substance: TRIHEXYPHENIDYL HYDROCHLORIDE
     Indication: Depression
     Route: 048
     Dates: start: 20160810, end: 20160908
  27. ARTANE [Interacting]
     Active Substance: TRIHEXYPHENIDYL HYDROCHLORIDE
     Indication: Psychiatric symptom
     Route: 048
     Dates: start: 20160810, end: 20160908
  28. MIANSERIN HYDROCHLORIDE [Interacting]
     Active Substance: MIANSERIN HYDROCHLORIDE
     Indication: Back pain
     Dosage: THERAPY START DATE: //2016?THERAPY END DATE: //2016. ?THE DOCTOR PRESCRIBED HIM OVER A PERIOD BE...
     Route: 048
     Dates: start: 2016, end: 2016
  29. MIANSERIN HYDROCHLORIDE [Interacting]
     Active Substance: MIANSERIN HYDROCHLORIDE
     Indication: Depression
     Dosage: THERAPY START DATE: //2016?THERAPY END DATE: //2016. ?THE DOCTOR PRESCRIBED HIM OVER A PERIOD BE...
     Route: 048
     Dates: start: 2016, end: 2016
  30. FENTANYL [Interacting]
     Active Substance: FENTANYL
     Indication: Back pain
     Dosage: THERAPY START DATE: //2016?THERAPY END DATE: //2016/DUROGESIC. ?THE DOCTOR PRESCRIBED HIM OVER ...
     Route: 062
     Dates: start: 20160726, end: 2016
  31. FENTANYL [Interacting]
     Active Substance: FENTANYL
     Indication: Back pain
  32. PAROXETINE [Interacting]
     Active Substance: PAROXETINE
     Indication: Product used for unknown indication
     Dosage: EVERY 0.33 DAY UNITS IN INTERVAL.
     Route: 048
     Dates: start: 20160829, end: 20160908
  33. TRAMADOL HYDROCHLORIDE [Interacting]
     Active Substance: TRAMADOL HYDROCHLORIDE
     Indication: Product used for unknown indication
     Route: 048
     Dates: start: 20160903, end: 2016
  34. ACETAMINOPHEN\CODEINE PHOSPHATE [Interacting]
     Active Substance: ACETAMINOPHEN\CODEINE PHOSPHATE
     Indication: Product used for unknown indication
     Route: 048
     Dates: start: 2016, end: 2016
  35. ACETAMINOPHEN\TRAMADOL [Interacting]
     Active Substance: ACETAMINOPHEN\TRAMADOL
     Indication: Product used for unknown indication
     Dosage: TRAMADOL/PARACETAMOL EG LABO 37,5MG/325 MG
  36. AMISULPRIDE [Interacting]
     Active Substance: AMISULPRIDE
     Indication: Product used for unknown indication
     Route: 048
  37. COCAINE [Interacting]
     Active Substance: COCAINE
     Indication: Product used for unknown indication
  38. MEPHENESIN [Interacting]
     Active Substance: MEPHENESIN
     Indication: Product used for unknown indication
  39. MORPHINE [Interacting]
     Active Substance: MORPHINE
     Indication: Product used for unknown indication
  40. NAFRONYL [Interacting]
     Active Substance: NAFRONYL
     Indication: Product used for unknown indication
  41. NORDAZEPAM [Interacting]
     Active Substance: NORDAZEPAM
     Indication: Product used for unknown indication
  42. OXAZEPAM [Interacting]
     Active Substance: OXAZEPAM
     Indication: Product used for unknown indication
  43. TEMAZEPAM [Interacting]
     Active Substance: TEMAZEPAM
     Indication: Product used for unknown indication
  44. OXAZEPAM [Interacting]
     Active Substance: OXAZEPAM
     Indication: Depression
     Route: 048
  45. OXAZEPAM [Interacting]
     Active Substance: OXAZEPAM
     Indication: Psychiatric symptom
     Route: 048
  46. ALPRAZOLAM [Interacting]
     Active Substance: ALPRAZOLAM
     Indication: Psychiatric symptom
     Route: 048
  47. ALPRAZOLAM [Interacting]
     Active Substance: ALPRAZOLAM
     Indication: Depression
     Route: 048
  48. ZOPICLONE [Interacting]
     Active Substance: ZOPICLONE
     Indication: Psychiatric symptom
     Route: 048
  49. ZOPICLONE [Interacting]
     Active Substance: ZOPICLONE
     Indication: Depression
     Route: 048
  50. NIFUROXAZIDE [Interacting]
     Active Substance: NIFUROXAZIDE
     Route: 048
     Dates: start: 2016, end: 2016

REACTIONS (55)
  - Hepatitis acute [Fatal]
  - Coma [Fatal]
  - Accidental poisoning [Fatal]
  - Respiratory depression [Fatal]
  - Somnolence [Fatal]
  - Encephalopathy [Fatal]
  - Overdose [Fatal]
  - Cardiomyopathy [Fatal]
  - Myocarditis [Fatal]
  - Labelled drug-drug interaction issue [Fatal]
  - Hyperglycaemia [Fatal]
  - Cholecystitis infective [Fatal]
  - Acute pulmonary oedema [Fatal]
  - Confusional state [Fatal]
  - Jaundice [Fatal]
  - Drug screen false positive [Fatal]
  - Toxicity to various agents [Fatal]
  - Cardio-respiratory arrest [Fatal]
  - Stenosis [Fatal]
  - Pancreas infection [Fatal]
  - Cardiac disorder [Unknown]
  - Coronary artery stenosis [Fatal]
  - Synovitis [Unknown]
  - Myocardial infarction [Fatal]
  - Hepatic cytolysis [Fatal]
  - Cardiac disorder [Unknown]
  - Synovitis [Unknown]
  - Inflammation [Unknown]
  - Hypersomnia [Unknown]
  - Leukocytosis [Unknown]
  - Hepatic enzyme increased [Fatal]
  - White blood cell count increased [Fatal]
  - Product prescribing issue [Unknown]
  - Thirst [Unknown]
  - Panic attack [Unknown]
  - Logorrhoea [Unknown]
  - Asteatosis [Unknown]
  - Aggression [Unknown]
  - Gallbladder injury [Fatal]
  - Monocytosis [Unknown]
  - Arrhythmia [Unknown]
  - Aspiration [Fatal]
  - Hypotension [Unknown]
  - Intentional self-injury [Fatal]
  - Drug abuse [Fatal]
  - Hepatic failure [Unknown]
  - Hepatobiliary disease [Unknown]
  - Ketosis [Fatal]
  - Necrosis [Fatal]
  - Nephropathy toxic [Unknown]
  - Liver injury [Unknown]
  - Bladder injury [Unknown]
  - Coronary artery disease [Unknown]
  - Pancreatic injury [Unknown]
  - Prescribed overdose [Unknown]

NARRATIVE: CASE EVENT DATE: 20160101
